FAERS Safety Report 22003759 (Version 1)
Quarter: 2023Q1

REPORT INFORMATION
  Report Type: Spontaneous
  Country: FR (occurrence: FR)
  Receive Date: 20230217
  Receipt Date: 20230217
  Transmission Date: 20230418
  Serious: Yes (Other)
  Sender: FDA-Public Use
  Company Number: FR-PFIZER INC-PV202300016206

PATIENT
  Age: 71 Year
  Sex: Female
  Weight: 67 kg

DRUGS (4)
  1. LETROZOLE [Suspect]
     Active Substance: LETROZOLE
     Indication: Hormone therapy
     Dosage: UNK
     Route: 048
     Dates: start: 20200115
  2. IBRANCE [Suspect]
     Active Substance: PALBOCICLIB
     Indication: Breast cancer
     Dosage: 125 MG, CYCLIC: 3 WEEKS/ 4
     Route: 065
     Dates: start: 20200115
  3. ALDACTONE [Concomitant]
     Active Substance: SPIRONOLACTONE
     Indication: Hepatic cirrhosis
     Dosage: UNK
     Route: 048
     Dates: start: 2008
  4. METFORMIN PAMOATE [Concomitant]
     Active Substance: METFORMIN PAMOATE
     Indication: Diabetes mellitus
     Dosage: UNK
     Route: 048

REACTIONS (8)
  - Hyperkalaemia [Unknown]
  - Oesophagitis ulcerative [Recovered/Resolved]
  - Renal failure [Unknown]
  - Hypercalcaemia [Unknown]
  - Hot flush [Recovered/Resolved]
  - Neoplasm progression [Unknown]
  - Spinal pain [Recovered/Resolved]
  - Vomiting [Unknown]

NARRATIVE: CASE EVENT DATE: 20200118
